FAERS Safety Report 6955952-2 (Version None)
Quarter: 2010Q3

REPORT INFORMATION
  Report Type: 
  Country: None (occurrence: None)
  Receive Date: 20100830
  Receipt Date: 20100824
  Transmission Date: 20110219
  Serious: Yes (Hospitalization)
  Sender: FDA-Public Use
  Company Number: JP-MERCK-1007USA01933

PATIENT
  Age: 60 Year
  Sex: Male

DRUGS (7)
  1. EMEND [Suspect]
     Indication: PROPHYLAXIS OF NAUSEA AND VOMITING
     Route: 048
     Dates: start: 20100609, end: 20100609
  2. EMEND [Suspect]
     Route: 048
     Dates: start: 20100610, end: 20100611
  3. FLUOROURACIL [Concomitant]
     Route: 065
     Dates: start: 20100607, end: 20100611
  4. TAXOTERE [Concomitant]
     Route: 065
     Dates: start: 20100607, end: 20100611
  5. BRIPLATIN [Concomitant]
     Route: 065
     Dates: start: 20100607, end: 20100611
  6. DECADRON [Concomitant]
     Route: 065
     Dates: start: 20100609, end: 20100614
  7. SEROTONE [Concomitant]
     Route: 065
     Dates: start: 20100609, end: 20100613

REACTIONS (1)
  - HEPATIC FUNCTION ABNORMAL [None]
